FAERS Safety Report 19306013 (Version 3)
Quarter: 2021Q3

REPORT INFORMATION
  Report Type: Other
  Country: NL (occurrence: NL)
  Receive Date: 20210525
  Receipt Date: 20210709
  Transmission Date: 20211014
  Serious: Yes (Hospitalization)
  Sender: FDA-Public Use
  Company Number: NL-ALSI-2021000146

PATIENT
  Age: 27 Year
  Sex: Male

DRUGS (1)
  1. NITROUS OXIDE. [Suspect]
     Active Substance: NITROUS OXIDE
     Indication: DRUG ABUSE
     Route: 055

REACTIONS (3)
  - Intracardiac thrombus [Recovering/Resolving]
  - Cardiac failure [Recovering/Resolving]
  - Acute myocardial infarction [Recovered/Resolved]
